FAERS Safety Report 11488765 (Version 1)
Quarter: 2015Q3

REPORT INFORMATION
  Report Type: Spontaneous
  Country: US (occurrence: US)
  Receive Date: 20150910
  Receipt Date: 20150910
  Transmission Date: 20151125
  Serious: No
  Sender: FDA-Public Use
  Company Number: US-ROCHE-1261657

PATIENT
  Age: 61 Year
  Sex: Male
  Weight: 85.81 kg

DRUGS (16)
  1. HYDROCORTISONE. [Concomitant]
     Active Substance: HYDROCORTISONE
  2. PEGASYS [Suspect]
     Active Substance: PEGINTERFERON ALFA-2A
     Route: 058
     Dates: start: 20140822
  3. OXYBUTYNIN [Concomitant]
     Active Substance: OXYBUTYNIN
  4. GABAPENTIN. [Concomitant]
     Active Substance: GABAPENTIN
  5. TRAMADOL. [Concomitant]
     Active Substance: TRAMADOL
  6. FINASTERIDE. [Concomitant]
     Active Substance: FINASTERIDE
  7. PEGASYS [Suspect]
     Active Substance: PEGINTERFERON ALFA-2A
     Indication: HEPATITIS C
     Route: 058
     Dates: start: 20130627
  8. VERAPAMIL [Concomitant]
     Active Substance: VERAPAMIL HYDROCHLORIDE
  9. MIRALAX [Concomitant]
     Active Substance: POLYETHYLENE GLYCOL 3350
  10. FIORICET [Concomitant]
     Active Substance: ACETAMINOPHEN\BUTALBITAL\CAFFEINE
  11. SOVALDI [Suspect]
     Active Substance: SOFOSBUVIR
     Indication: HEPATITIS C
     Route: 048
  12. RIBASPHERE [Suspect]
     Active Substance: RIBAVIRIN
     Indication: HEPATITIS C
     Dosage: 400 MG IN  MORNING AND 600 MG IN NIGHT
     Route: 048
  13. VICTRELIS [Suspect]
     Active Substance: BOCEPREVIR
     Indication: HEPATITIS C
     Route: 048
  14. RIBAVIRIN. [Suspect]
     Active Substance: RIBAVIRIN
     Indication: HEPATITIS C
     Route: 048
  15. NORCO [Concomitant]
     Active Substance: ACETAMINOPHEN\HYDROCODONE BITARTRATE
  16. TAMSULOSIN [Concomitant]
     Active Substance: TAMSULOSIN

REACTIONS (14)
  - Pain [Unknown]
  - Pain in extremity [Unknown]
  - Balance disorder [Unknown]
  - Rash [Unknown]
  - Decreased appetite [Not Recovered/Not Resolved]
  - Pruritus [Unknown]
  - Headache [Not Recovered/Not Resolved]
  - Pruritus generalised [Recovering/Resolving]
  - Ear infection [Unknown]
  - Pruritus [Not Recovered/Not Resolved]
  - Pyrexia [Unknown]
  - Ill-defined disorder [Not Recovered/Not Resolved]
  - Dizziness [Recovered/Resolved]
  - Gastric disorder [Unknown]

NARRATIVE: CASE EVENT DATE: 20140822
